FAERS Safety Report 5139865-7 (Version None)
Quarter: 2006Q4

REPORT INFORMATION
  Report Type: 
  Country: None (occurrence: None)
  Receive Date: 20061025
  Receipt Date: 20061025
  Transmission Date: 20070319
  Serious: Yes (Hospitalization)
  Sender: FDA-Public Use
  Company Number: None

PATIENT
  Age: 82 Year
  Sex: Male
  Weight: 68.9467 kg

DRUGS (2)
  1. ATENOLOL [Suspect]
     Dosage: 50 MG PO QD
  2. CLONIDINE [Suspect]
     Dosage: 0.4 MG Q WEEK

REACTIONS (4)
  - ASTHENIA [None]
  - DIZZINESS [None]
  - FALL [None]
  - JOINT INJURY [None]
